FAERS Safety Report 4372543-0 (Version None)
Quarter: 2004Q2

REPORT INFORMATION
  Report Type: 
  Country: None (occurrence: None)
  Receive Date: 20040526
  Receipt Date: 20040510
  Transmission Date: 20050107
  Serious: Yes (Hospitalization)
  Sender: FDA-Public Use
  Company Number: 2003AP03575

PATIENT
  Age: 49 Year
  Sex: Female
  Weight: 67 kg

DRUGS (14)
  1. ZOLADEX [Suspect]
     Indication: BREAST CANCER
     Dosage: 3.6 MG Q4WK SQ
     Dates: start: 20030630, end: 20030825
  2. NOLVADEX [Suspect]
     Indication: BREAST CANCER
     Dosage: 20 MG DAILY PO
     Route: 048
     Dates: start: 20030626, end: 20030908
  3. NOLVADEX [Suspect]
     Indication: BREAST CANCER
     Dosage: 20 MG DAILY PO
     Route: 048
     Dates: start: 20031117
  4. MYSLEE [Suspect]
     Dosage: 5 MG DAILY PO
     Route: 048
     Dates: start: 20030728, end: 20031007
  5. HOCHUUEKKITOU [Suspect]
     Indication: BONE MARROW DEPRESSION
     Dosage: 7.5 G DAILY
     Dates: start: 20030917, end: 20030924
  6. CINAL [Concomitant]
  7. LEUCON [Concomitant]
  8. ENDOXAN [Concomitant]
  9. PINORUBIN [Concomitant]
  10. FLUOROURACIL [Concomitant]
  11. BEZATOL [Concomitant]
  12. SIMVASTATIN [Concomitant]
  13. RADIOTHERAPY [Concomitant]
  14. DASEN [Concomitant]

REACTIONS (3)
  - BONE MARROW DEPRESSION [None]
  - HEPATIC STEATOSIS [None]
  - LIVER DISORDER [None]
